FAERS Safety Report 9915227 (Version 2)
Quarter: 2014Q1

REPORT INFORMATION
  Report Type: Spontaneous
  Country: CN (occurrence: CN)
  Receive Date: 20140220
  Receipt Date: 20140307
  Transmission Date: 20141002
  Serious: Yes (Other)
  Sender: FDA-Public Use
  Company Number: CN-ABBVIE-14P-035-1203490-00

PATIENT
  Sex: Female

DRUGS (2)
  1. DEPAKINE CHRONO [Suspect]
     Indication: EPILEPSY
     Dosage: EXTENDED RELEASE TABLET
     Route: 048
     Dates: start: 2007, end: 20140205
  2. DEPAKINE CHRONO [Suspect]
     Dosage: EXTENDED RELEASE TABLET
     Route: 048
     Dates: start: 20140206

REACTIONS (2)
  - Abnormal behaviour [Unknown]
  - Epilepsy [Unknown]
